FAERS Safety Report 5619531-1 (Version None)
Quarter: 2008Q1

REPORT INFORMATION
  Report Type: 
  Country: None (occurrence: None)
  Receive Date: 20080114
  Receipt Date: 20061117
  Transmission Date: 20080703
  Serious: Yes (Other)
  Sender: FDA-Public Use
  Company Number: A03200606944

PATIENT
  Age: 78 Year
  Sex: Female
  Weight: 84.35 kg

DRUGS (6)
  1. PLAVIX [Suspect]
     Indication: STENT PLACEMENT
     Dosage: 75 MG QD - ORAL
     Route: 048
     Dates: start: 20020101
  2. AMITRIPTYLINE HCL [Concomitant]
  3. METOPROLOL SUCCINATE [Concomitant]
  4. CELECOXIB [Concomitant]
  5. ESOMEPRAZOLE [Concomitant]
  6. RALOXIFENE HYDROCHLORIDE [Concomitant]

REACTIONS (2)
  - HAEMATOCHEZIA [None]
  - LARGE INTESTINAL HAEMORRHAGE [None]
